FAERS Safety Report 9134033 (Version 2)
Quarter: 2013Q1

REPORT INFORMATION
  Report Type: Spontaneous
  Country: US (occurrence: US)
  Receive Date: 20130304
  Receipt Date: 20130307
  Transmission Date: 20140127
  Serious: No
  Sender: FDA-Public Use
  Company Number: US-009507513-1302USA013647

PATIENT
  Age: 27 Year
  Sex: Female
  Weight: 77.98 kg

DRUGS (1)
  1. NEXPLANON [Suspect]
     Indication: CONTRACEPTION
     Dosage: AS RECOMMENDED
     Route: 059
     Dates: start: 20130225, end: 20130226

REACTIONS (3)
  - Pain [Unknown]
  - Device dislocation [Unknown]
  - Contusion [Unknown]
